FAERS Safety Report 18891412 (Version 1)
Quarter: 2021Q1

REPORT INFORMATION
  Report Type: Not Available
  Country: None (occurrence: None)
  Receive Date: 20210215
  Receipt Date: 20210215
  Transmission Date: 20210420
  Serious: No
  Sender: FDA-Public Use
  Company Number: ROCHE-1622005

PATIENT
  Age: 64 Year

DRUGS (12)
  1. ALEVE [Concomitant]
     Active Substance: NAPROXEN SODIUM
  2. METHOTREXATE. [Suspect]
     Active Substance: METHOTREXATE
  3. LEFLUNOMIDE. [Suspect]
     Active Substance: LEFLUNOMIDE
     Dosage: ONGOING
     Dates: end: 2021
  4. DIPHENHYDRAMINE HCL [Concomitant]
     Active Substance: DIPHENHYDRAMINE HYDROCHLORIDE
     Dates: start: 20150604
  5. PREDNISONE. [Concomitant]
     Active Substance: PREDNISONE
     Dates: end: 2019
  6. LEFLUNOMIDE. [Suspect]
     Active Substance: LEFLUNOMIDE
     Dates: start: 2021
  7. RITUXAN [Suspect]
     Active Substance: RITUXIMAB
     Dosage: ON DAY 1 AND 15?DATE OF PREVIOUS RITUXIMAB DOSE: 08/NOV/2017?DATE OF MOST RECENT DOSE OF RITUXIMAB I
     Dates: start: 20150604
  8. LEFLUNOMIDE. [Suspect]
     Active Substance: LEFLUNOMIDE
  9. MORPHINE [Concomitant]
     Active Substance: MORPHINE
  10. ACETAMINOPHEN. [Concomitant]
     Active Substance: ACETAMINOPHEN
     Dates: start: 20150604
  11. METHYLPREDNISOLONE. [Concomitant]
     Active Substance: METHYLPREDNISOLONE
     Dates: start: 20150604
  12. CELEBREX [Concomitant]
     Active Substance: CELECOXIB
     Dates: end: 2019

REACTIONS (36)
  - Cystitis [None]
  - Arthralgia [None]
  - Hypotension [None]
  - Mouth ulceration [None]
  - Gingival pain [None]
  - Abdominal pain [None]
  - Arthritis [None]
  - Periodontitis [None]
  - Gingivitis [None]
  - Precancerous condition [None]
  - Paraesthesia oral [None]
  - Aphthous ulcer [None]
  - Blood pressure diastolic abnormal [None]
  - Intentional product use issue [None]
  - Basal cell carcinoma [None]
  - Fatigue [None]
  - Scab [None]
  - Oxygen saturation decreased [None]
  - Off label use [None]
  - Rash [None]
  - Blood pressure systolic increased [None]
  - Blood pressure fluctuation [None]
  - Diarrhoea [None]
  - Fungal infection [None]
  - Vision blurred [None]
  - Cough [None]
  - Nausea [None]
  - Drug ineffective [None]
  - Heart rate irregular [None]
  - Stomatitis [None]
  - Urinary tract infection [None]
  - Feeling abnormal [None]
  - Herpes zoster [None]
  - Rash pruritic [None]
  - Pain in extremity [None]
  - Vulvovaginal pain [None]

NARRATIVE: CASE EVENT DATE: 20151203
